FAERS Safety Report 8972851 (Version 1)
Quarter: 2012Q4

REPORT INFORMATION
  Report Type: 
  Country: US (occurrence: US)
  Receive Date: 20121218
  Receipt Date: 20121218
  Transmission Date: 20130627
  Serious: Yes (Disabling)
  Sender: FDA-Public Use
  Company Number: US-MERCK-1212USA005751

PATIENT

DRUGS (1)
  1. PROPECIA [Suspect]
     Indication: ANDROGENETIC ALOPECIA
     Dosage: 1 mg, UNK
     Route: 048
     Dates: start: 200906

REACTIONS (6)
  - Male genital atrophy [Unknown]
  - Loss of libido [Unknown]
  - Erectile dysfunction [Unknown]
  - Semen volume decreased [Unknown]
  - Orgasm abnormal [Unknown]
  - Depression [Unknown]
